FAERS Safety Report 4701259-3 (Version None)
Quarter: 2005Q2

REPORT INFORMATION
  Report Type: 
  Country: None (occurrence: None)
  Receive Date: 20050628
  Receipt Date: 20050314
  Transmission Date: 20051028
  Serious: Yes (Hospitalization)
  Sender: FDA-Public Use
  Company Number: US-MERCK-0503USA02866

PATIENT
  Age: 45 Year
  Sex: Male
  Weight: 143 kg

DRUGS (10)
  1. VIOXX [Suspect]
     Indication: SHOULDER PAIN
     Route: 048
     Dates: start: 20021101, end: 20040922
  2. VIOXX [Suspect]
     Indication: BACK PAIN
     Route: 048
     Dates: start: 20021101, end: 20040922
  3. MORPHINE [Concomitant]
     Route: 041
  4. LORCET-HD [Concomitant]
     Route: 065
     Dates: start: 19950101
  5. SOMA [Concomitant]
     Route: 065
  6. RESTORIL [Concomitant]
     Route: 065
     Dates: start: 19970101
  7. PHENERGAN [Concomitant]
     Route: 065
  8. PROZAC [Concomitant]
     Route: 065
     Dates: start: 19960101, end: 20040101
  9. ZANTAC [Concomitant]
     Route: 065
  10. TESTOSTERONE [Concomitant]
     Route: 051

REACTIONS (7)
  - CORONARY ARTERY DISEASE [None]
  - EMOTIONAL DISTRESS [None]
  - GOUT [None]
  - HYPERTENSION [None]
  - MALIGNANT MELANOMA [None]
  - MYOCARDIAL INFARCTION [None]
  - THROMBOLYSIS [None]
